FAERS Safety Report 16644288 (Version 1)
Quarter: 2019Q3

REPORT INFORMATION
  Report Type: Spontaneous
  Country: US (occurrence: US)
  Receive Date: 20190729
  Receipt Date: 20190729
  Transmission Date: 20191004
  Serious: No
  Sender: FDA-Public Use
  Company Number: US-JNJFOC-20190737219

PATIENT
  Sex: Female
  Weight: 61.29 kg

DRUGS (9)
  1. PRESERVISION [Concomitant]
     Active Substance: MINERALS\VITAMINS
     Indication: MACULAR DEGENERATION
  2. PROGESTERONE. [Concomitant]
     Active Substance: PROGESTERONE
     Route: 065
     Dates: start: 2000
  3. PRESERVISION [Concomitant]
     Active Substance: MINERALS\VITAMINS
     Indication: EYE DISORDER
     Route: 065
     Dates: start: 2014
  4. CALCIUM                            /00751522/ [Concomitant]
     Route: 065
  5. ELMIRON [Suspect]
     Active Substance: PENTOSAN POLYSULFATE SODIUM
     Indication: CYSTITIS INTERSTITIAL
     Route: 048
     Dates: start: 201807, end: 20190724
  6. SYNTHROID [Concomitant]
     Active Substance: LEVOTHYROXINE SODIUM
     Indication: SILENT THYROIDITIS
     Route: 065
  7. VITAMIN D3 [Concomitant]
     Active Substance: CHOLECALCIFEROL
     Route: 065
  8. CYTOMEL [Concomitant]
     Active Substance: LIOTHYRONINE SODIUM
     Indication: THYROIDITIS
     Route: 065
     Dates: start: 2004
  9. EVAMIST [Concomitant]
     Active Substance: ESTRADIOL
     Indication: BLADDER DISORDER
     Route: 065
     Dates: start: 2000

REACTIONS (10)
  - Pruritus generalised [Not Recovered/Not Resolved]
  - Incorrect dose administered [Unknown]
  - Dry mouth [Not Recovered/Not Resolved]
  - Dry throat [Not Recovered/Not Resolved]
  - Discomfort [Not Recovered/Not Resolved]
  - Dyspepsia [Unknown]
  - Oropharyngeal pain [Unknown]
  - Ulcer [Unknown]
  - Weight increased [Not Recovered/Not Resolved]
  - Off label use [Unknown]

NARRATIVE: CASE EVENT DATE: 2018
